FAERS Safety Report 5023548-8 (Version None)
Quarter: 2006Q2

REPORT INFORMATION
  Report Type: 
  Country: None (occurrence: None)
  Receive Date: 20060606
  Receipt Date: 20060516
  Transmission Date: 20061013
  Serious: Yes (Death, Hospitalization)
  Sender: FDA-Public Use
  Company Number: 224966

PATIENT
  Age: 54 Year
  Sex: Female
  Weight: 57 kg

DRUGS (3)
  1. AVASTIN [Suspect]
     Indication: DRUG USE FOR UNKNOWN INDICATION
     Dosage: INTRAVENOUS
     Route: 042
     Dates: start: 20060222, end: 20060224
  2. FLUOROURACIL [Suspect]
     Indication: DRUG USE FOR UNKNOWN INDICATION
     Dosage: INTRAVENOUS
     Route: 042
     Dates: start: 20060208, end: 20060224
  3. IRINOTECAN HCL [Suspect]
     Indication: DRUG USE FOR UNKNOWN INDICATION
     Dosage: INTRAVENOUS
     Route: 042
     Dates: start: 20060208, end: 20060224

REACTIONS (23)
  - ABDOMINAL PAIN [None]
  - ANOREXIA [None]
  - BLOOD CREATININE INCREASED [None]
  - BLOOD SODIUM DECREASED [None]
  - C-REACTIVE PROTEIN INCREASED [None]
  - DEHYDRATION [None]
  - DIARRHOEA [None]
  - DYSPHAGIA [None]
  - ENTERITIS INFECTIOUS [None]
  - ESCHERICHIA INFECTION [None]
  - FEBRILE BONE MARROW APLASIA [None]
  - GAMMA-GLUTAMYLTRANSFERASE INCREASED [None]
  - GASTROINTESTINAL DISORDER [None]
  - GASTROINTESTINAL NECROSIS [None]
  - GENERAL PHYSICAL CONDITION ABNORMAL [None]
  - HAEMOGLOBIN DECREASED [None]
  - INTESTINAL ISCHAEMIA [None]
  - METASTASIS [None]
  - MUCOUS MEMBRANE DISORDER [None]
  - NECROTISING COLITIS [None]
  - NEUTROPENIA [None]
  - ORAL FUNGAL INFECTION [None]
  - SEPTIC SHOCK [None]
